FAERS Safety Report 20443251 (Version 1)
Quarter: 2022Q1

REPORT INFORMATION
  Report Type: Report from Study
  Country: US (occurrence: US)
  Receive Date: 20220208
  Receipt Date: 20220208
  Transmission Date: 20220424
  Serious: Yes (Hospitalization)
  Sender: FDA-Public Use
  Company Number: US-NOVARTISTESTPH-NVSC2022US026171

PATIENT
  Age: 10 Year
  Sex: Male

DRUGS (1)
  1. ILARIS [Suspect]
     Active Substance: CANAKINUMAB
     Indication: Still^s disease
     Dosage: 120 MG, QMO
     Route: 058
     Dates: start: 20191017, end: 20220126

REACTIONS (1)
  - Juvenile idiopathic arthritis [Recovered/Resolved]

NARRATIVE: CASE EVENT DATE: 20220126
